FAERS Safety Report 21310633 (Version 1)
Quarter: 2022Q3

REPORT INFORMATION
  Report Type: Spontaneous
  Country: US (occurrence: US)
  Receive Date: 20220909
  Receipt Date: 20220909
  Transmission Date: 20221026
  Serious: Yes (Other)
  Sender: FDA-Public Use
  Company Number: US-BAUSCH-BL-2022-021530

PATIENT
  Age: 37 Year
  Sex: Female
  Weight: 72.640 kg

DRUGS (4)
  1. UCERIS [Suspect]
     Active Substance: BUDESONIDE
     Indication: Colitis ulcerative
     Dosage: TWICE A DAY FOR 2 WEEKS
     Route: 054
     Dates: start: 202207
  2. UCERIS [Suspect]
     Active Substance: BUDESONIDE
     Dosage: ONCE A DAY
     Route: 054
     Dates: end: 2022
  3. LEXAPRO [Concomitant]
     Active Substance: ESCITALOPRAM OXALATE
     Indication: Product used for unknown indication
     Route: 048
  4. SAFFRON [Concomitant]
     Active Substance: SAFFRON
     Indication: Product used for unknown indication
     Route: 048

REACTIONS (4)
  - Colitis ulcerative [Not Recovered/Not Resolved]
  - Condition aggravated [Not Recovered/Not Resolved]
  - Product use issue [Unknown]
  - Stress at work [Unknown]

NARRATIVE: CASE EVENT DATE: 20220101
